FAERS Safety Report 17025564 (Version 1)
Quarter: 2019Q4

REPORT INFORMATION
  Report Type: Spontaneous
  Country: FR (occurrence: FR)
  Receive Date: 20191113
  Receipt Date: 20191113
  Transmission Date: 20200122
  Serious: Yes (Life-Threatening, Hospitalization)
  Sender: FDA-Public Use
  Company Number: FR-ZYDUS-042935

PATIENT
  Age: 15 Year
  Sex: Female
  Weight: 65.1 kg

DRUGS (7)
  1. TRAMADOL. [Suspect]
     Active Substance: TRAMADOL
     Indication: POISONING DELIBERATE
     Route: 048
     Dates: start: 20190913, end: 20190913
  2. TAREG [Suspect]
     Active Substance: VALSARTAN
     Indication: POISONING DELIBERATE
     Route: 048
     Dates: start: 20190913, end: 20190913
  3. PARACETAMOL [Suspect]
     Active Substance: ACETAMINOPHEN
     Indication: POISONING DELIBERATE
     Route: 048
     Dates: start: 20190913, end: 20190913
  4. NAPROXEN. [Suspect]
     Active Substance: NAPROXEN
     Indication: POISONING DELIBERATE
     Route: 048
     Dates: start: 20190913, end: 20190913
  5. VOLTARENE (DICLOFENAC) [Suspect]
     Active Substance: DICLOFENAC
     Indication: POISONING DELIBERATE
     Route: 048
     Dates: start: 20190913, end: 20190913
  6. LUMIRELAX (METHOCARBAMOL) [Suspect]
     Active Substance: METHOCARBAMOL
     Indication: POISONING DELIBERATE
     Route: 048
     Dates: start: 20190913, end: 20190913
  7. LOXEN (NICARDIPINE) [Suspect]
     Active Substance: NICARDIPINE
     Indication: POISONING DELIBERATE
     Route: 048
     Dates: start: 20190913, end: 20190913

REACTIONS (6)
  - Haemodynamic instability [Recovered/Resolved]
  - Acidosis [Recovered/Resolved]
  - Altered state of consciousness [Recovered/Resolved]
  - Generalised tonic-clonic seizure [Recovered/Resolved]
  - Acute kidney injury [Recovered/Resolved]
  - Hypoventilation [Recovered/Resolved]

NARRATIVE: CASE EVENT DATE: 20190913
